FAERS Safety Report 10256922 (Version 1)
Quarter: 2014Q2

REPORT INFORMATION
  Report Type: Spontaneous
  Country: SE (occurrence: SE)
  Receive Date: 20140625
  Receipt Date: 20140625
  Transmission Date: 20141212
  Serious: Yes (Hospitalization)
  Sender: FDA-Public Use
  Company Number: SE-ROCHE-1424254

PATIENT
  Age: 83 Year
  Sex: Female

DRUGS (5)
  1. LUCENTIS [Suspect]
     Indication: DIABETIC RETINAL OEDEMA
     Route: 050
     Dates: start: 20131011
  2. WARAN [Concomitant]
  3. INSULATARD [Concomitant]
  4. FURIX [Concomitant]
  5. KALEORID [Concomitant]

REACTIONS (1)
  - Cerebral infarction [Recovered/Resolved]
